FAERS Safety Report 6888771-6 (Version None)
Quarter: 2010Q3

REPORT INFORMATION
  Report Type: 
  Country: None (occurrence: None)
  Receive Date: 20100730
  Receipt Date: 20071121
  Transmission Date: 20110219
  Serious: No
  Sender: FDA-Public Use
  Company Number: US-PFIZER INC-2007093580

PATIENT
  Sex: Female

DRUGS (4)
  1. LIPITOR [Suspect]
  2. VITAMIN D [Concomitant]
  3. ACETYLSALICYLIC ACID SRT [Concomitant]
  4. PRILOSEC [Concomitant]

REACTIONS (1)
  - DRUG INEFFECTIVE [None]
